FAERS Safety Report 8042652-3 (Version None)
Quarter: 2012Q1

REPORT INFORMATION
  Report Type: 
  Country: None (occurrence: None)
  Receive Date: 20120112
  Receipt Date: 20120109
  Transmission Date: 20120608
  Serious: Yes (Death)
  Sender: FDA-Public Use
  Company Number: US-CELGENEUS-163-21880-11120696

PATIENT
  Sex: Male

DRUGS (12)
  1. DIGOXIN [Concomitant]
     Dosage: 125 MICROGRAM
     Route: 048
  2. MEGESTROL ACETATE [Concomitant]
     Dosage: 40 MILLILITER
     Route: 048
  3. POTASSIUM CHLORIDE [Concomitant]
     Dosage: 10 MILLIEQUIVALENTS
     Route: 048
  4. DEXAMETHASONE TAB [Concomitant]
     Dosage: 2 MILLIGRAM
     Route: 048
  5. WARFARIN SODIUM [Concomitant]
     Dosage: 2 MILLIGRAM
     Route: 048
  6. DILTIAZEM HCL [Concomitant]
     Dosage: 30 MILLIGRAM
     Route: 048
  7. PANTOPRAZOLE [Concomitant]
     Dosage: 40 MILLIGRAM
     Route: 048
  8. REVLIMID [Suspect]
     Indication: MULTIPLE MYELOMA
     Dosage: 10 MILLIGRAM
     Route: 048
     Dates: start: 20110815, end: 20111126
  9. DOCUSATE SODIUM [Concomitant]
     Dosage: 100 MILLIGRAM
     Route: 048
  10. MIRALAX [Concomitant]
     Dosage: 17 GRAM
     Route: 048
  11. SYNTHROID [Concomitant]
     Dosage: 80 MICROGRAM
     Route: 048
  12. FUROSEMIDE [Concomitant]
     Dosage: 40 MILLIGRAM
     Route: 048

REACTIONS (2)
  - CARDIAC AMYLOIDOSIS [None]
  - MULTIPLE MYELOMA [None]
